FAERS Safety Report 22027522 (Version 2)
Quarter: 2023Q1

REPORT INFORMATION
  Report Type: Spontaneous
  Country: JP (occurrence: None)
  Receive Date: 20230223
  Receipt Date: 20230310
  Transmission Date: 20230417
  Serious: Yes (Other)
  Sender: FDA-Public Use
  Company Number: 2023A040270

PATIENT
  Age: 85 Year
  Sex: Male

DRUGS (1)
  1. ONDEXXYA [Suspect]
     Active Substance: ANDEXANET ALFA
     Dosage: DOSE UNKNOWN
     Route: 042
     Dates: start: 20230203

REACTIONS (1)
  - Cerebral infarction [Unknown]

NARRATIVE: CASE EVENT DATE: 20230214
